FAERS Safety Report 8340610-2 (Version None)
Quarter: 2012Q2

REPORT INFORMATION
  Report Type: 
  Country: None (occurrence: None)
  Receive Date: 20120507
  Receipt Date: 20120425
  Transmission Date: 20120825
  Serious: Yes (Other)
  Sender: FDA-Public Use
  Company Number: DE-NOVOPROD-339880

PATIENT
  Age: 15 Year
  Sex: Male
  Weight: 42.9 kg

DRUGS (1)
  1. NORDITROPIN [Suspect]
     Indication: GROWTH HORMONE DEFICIENCY
     Dosage: 1.2 MG, UNK
     Route: 058
     Dates: start: 20040601, end: 20111101

REACTIONS (1)
  - TESTICULAR GERM CELL TUMOUR MIXED STAGE I [None]
